FAERS Safety Report 5585355-7 (Version None)
Quarter: 2008Q1

REPORT INFORMATION
  Report Type: 
  Country: None (occurrence: None)
  Receive Date: 20080104
  Receipt Date: 20080104
  Transmission Date: 20080703
  Serious: Yes (Hospitalization)
  Sender: FDA-Public Use
  Company Number: None

PATIENT
  Sex: Female
  Weight: 149.7 kg

DRUGS (14)
  1. ANASTRAZOLE [Suspect]
     Indication: BREAST CANCER
     Dosage: 1MG QD PO
     Route: 048
     Dates: start: 20050101, end: 20071101
  2. CELECOXIB [Concomitant]
  3. M.V.I. [Concomitant]
  4. FUROSEMIDE [Concomitant]
  5. GABAPENTIN [Concomitant]
  6. SENNA [Concomitant]
  7. ASPIRIN [Concomitant]
  8. COUMADIN [Concomitant]
  9. FERROUS SULFATE TAB [Concomitant]
  10. GLARGINE [Concomitant]
  11. ANASTRAZOLE [Concomitant]
  12. NIFEDIPINE [Concomitant]
  13. POTASSIUM CHLORIDE [Concomitant]
  14. DILAUDID [Concomitant]

REACTIONS (3)
  - INTERNATIONAL NORMALISED RATIO DECREASED [None]
  - PAIN IN EXTREMITY [None]
  - TENDERNESS [None]
